FAERS Safety Report 6120010-6 (Version None)
Quarter: 2009Q1

REPORT INFORMATION
  Report Type: 
  Country: None (occurrence: None)
  Receive Date: 20090316
  Receipt Date: 20090309
  Transmission Date: 20090719
  Serious: Yes (Hospitalization, Other)
  Sender: FDA-Public Use
  Company Number: US-ROXANE LABORATORIES, INC.-2009-RO-00216RO

PATIENT
  Age: 51 Year
  Sex: Female
  Weight: 143 kg

DRUGS (22)
  1. FUROSEMIDE [Suspect]
     Indication: FLUID OVERLOAD
     Dosage: 360MG
     Route: 042
  2. FUROSEMIDE [Suspect]
     Dosage: 240MG
     Route: 042
  3. FUROSEMIDE [Suspect]
     Route: 042
  4. FUROSEMIDE [Suspect]
     Route: 042
  5. MIDAZOLAM HCL [Suspect]
     Indication: ACUTE RESPIRATORY DISTRESS SYNDROME
  6. MORPHINE [Suspect]
     Indication: ACUTE RESPIRATORY DISTRESS SYNDROME
  7. PROPOFOL [Suspect]
     Indication: ACUTE RESPIRATORY DISTRESS SYNDROME
  8. CEFTRIAXONE [Suspect]
     Indication: EVIDENCE BASED TREATMENT
     Dosage: 2G
     Route: 042
  9. METRONIDAZOLE [Suspect]
     Indication: EVIDENCE BASED TREATMENT
     Dosage: 1500MG
     Route: 042
  10. CASPOFUNGIN [Suspect]
     Indication: EVIDENCE BASED TREATMENT
     Route: 042
  11. CASPOFUNGIN [Suspect]
     Dosage: 50MG
     Route: 042
  12. LINEZOLID [Suspect]
     Indication: EVIDENCE BASED TREATMENT
     Dosage: 1200MG
     Route: 042
  13. LEVOFLOXACIN [Suspect]
     Indication: ANTIBIOTIC THERAPY
     Route: 042
  14. PIPERACILLIN AND TAZOBACTAM [Suspect]
     Indication: ANTIBIOTIC THERAPY
     Dosage: 6.75G
     Route: 042
  15. SODIUM BICARBONATE [Suspect]
     Indication: ACIDOSIS
  16. ELECTROLYTE REPLACEMENT [Suspect]
     Indication: ELECTROLYTE IMBALANCE
  17. SALINE [Concomitant]
     Route: 042
  18. NOREPINEPHRINE [Concomitant]
  19. DOPAMINE HCL [Concomitant]
  20. DIGOXIN [Concomitant]
  21. WARFARIN SODIUM [Concomitant]
     Indication: ANTICOAGULANT THERAPY
  22. BETA-BLOCKER [Concomitant]

REACTIONS (7)
  - BLOOD POTASSIUM INCREASED [None]
  - DEAFNESS NEUROSENSORY [None]
  - FLUID OVERLOAD [None]
  - HYPOALBUMINAEMIA [None]
  - INTERNATIONAL NORMALISED RATIO INCREASED [None]
  - MYOCARDIAL INFARCTION [None]
  - OTOTOXICITY [None]
